FAERS Safety Report 18990506 (Version 10)
Quarter: 2021Q4

REPORT INFORMATION
  Report Type: Report from Study
  Country: CH (occurrence: CH)
  Receive Date: 20210310
  Receipt Date: 20211019
  Transmission Date: 20220303
  Serious: Yes (Other)
  Sender: FDA-Public Use
  Company Number: NVSC2021CH044575

PATIENT
  Age: 54 Year
  Sex: Male
  Weight: 88 kg

DRUGS (18)
  1. SIPONIMOD [Suspect]
     Active Substance: SIPONIMOD
     Indication: Secondary progressive multiple sclerosis
     Dosage: 2 MG, QD
     Route: 048
     Dates: start: 20151022, end: 20160321
  2. SIPONIMOD [Suspect]
     Active Substance: SIPONIMOD
     Dosage: 2 MG, QD
     Route: 048
     Dates: start: 20160323, end: 20210223
  3. SIPONIMOD [Suspect]
     Active Substance: SIPONIMOD
     Dosage: 0.25 (BILSTER 6 DAYS TITRATION)
     Route: 048
     Dates: start: 20210416
  4. PLACEBO [Suspect]
     Active Substance: UNSPECIFIED INGREDIENT
     Indication: Secondary progressive multiple sclerosis
     Dosage: UNK
     Route: 048
     Dates: start: 20150408, end: 20151020
  5. PANTOPRAZOLE SODIUM [Concomitant]
     Active Substance: PANTOPRAZOLE SODIUM
     Indication: Prophylaxis
     Dosage: 20 MG, QD
     Route: 065
     Dates: start: 20120101
  6. MIRTAZAPINE [Concomitant]
     Active Substance: MIRTAZAPINE
     Indication: Insomnia
     Dosage: 7.5 MG, QD
     Route: 065
     Dates: start: 20141014
  7. TIZANIDINE [Concomitant]
     Active Substance: TIZANIDINE
     Indication: Muscle spasms
     Dosage: 4 MG, QD (0-0-0.5-0)
     Route: 065
     Dates: start: 20130101
  8. NITROFURANTOIN [Concomitant]
     Active Substance: NITROFURANTOIN
     Indication: Urinary tract infection
     Dosage: UNK
     Route: 065
  9. IBUPROFEN [Concomitant]
     Active Substance: IBUPROFEN
     Indication: Injury
     Dosage: UNK
     Route: 065
  10. IBUPROFEN [Concomitant]
     Active Substance: IBUPROFEN
     Indication: Back pain
  11. TIZANIDINE HYDROCHLORIDE [Concomitant]
     Active Substance: TIZANIDINE HYDROCHLORIDE
     Indication: Muscle spasms
     Dosage: UNK
     Route: 065
  12. CHOLECALCIFEROL [Concomitant]
     Active Substance: CHOLECALCIFEROL
     Indication: Prophylaxis
     Dosage: UNK
     Route: 065
  13. TAMSULOSIN [Concomitant]
     Active Substance: TAMSULOSIN
     Indication: Urinary retention
     Dosage: UNK
     Route: 065
  14. DER-MED [Concomitant]
     Indication: Product used for unknown indication
     Dosage: DRY SKIN LOTION
     Route: 061
  15. CLOTRIMAZOLE [Concomitant]
     Active Substance: CLOTRIMAZOLE
     Indication: Fungal infection
     Dosage: UNK
     Route: 065
  16. CICLOPIROX OLAMINE [Concomitant]
     Active Substance: CICLOPIROX OLAMINE
     Indication: Pityriasis
     Dosage: UNK
     Route: 065
  17. CICLOPIROX [Concomitant]
     Active Substance: CICLOPIROX
     Indication: Tinea pedis
     Dosage: UNK
     Route: 065
  18. BACTRIM [Concomitant]
     Active Substance: SULFAMETHOXAZOLE\TRIMETHOPRIM
     Indication: Urinary tract infection
     Dosage: 800/160 MG
     Route: 065
     Dates: start: 20210226

REACTIONS (1)
  - Astrocytoma [Not Recovered/Not Resolved]

NARRATIVE: CASE EVENT DATE: 20210223
